FAERS Safety Report 6813218-5 (Version None)
Quarter: 2010Q3

REPORT INFORMATION
  Report Type: 
  Country: None (occurrence: None)
  Receive Date: 20100701
  Receipt Date: 20100625
  Transmission Date: 20110219
  Serious: Yes (Other)
  Sender: FDA-Public Use
  Company Number: AU-PFIZER INC-2010062424

PATIENT
  Age: 60 Year
  Sex: Male

DRUGS (7)
  1. LIPITOR [Suspect]
     Indication: HYPERCHOLESTEROLAEMIA
     Dosage: 40 MG, 1X/DAY
     Route: 048
     Dates: start: 20090901, end: 20100301
  2. CARVEDILOL [Concomitant]
     Indication: CARDIOMYOPATHY
     Dosage: 25 MG, 2X/DAY
     Route: 048
  3. TELMISARTAN [Concomitant]
     Dosage: 20 MG, 1X/DAY
     Route: 048
  4. PANTOPRAZOLE [Concomitant]
     Indication: GASTROOESOPHAGEAL REFLUX DISEASE
     Dosage: 40 MG, 1X/DAY
  5. EPLERENONE [Concomitant]
     Indication: CARDIOMYOPATHY
     Dosage: 12.5 MG, 1X/DAY
     Route: 048
  6. FRUSEMIDE [Concomitant]
     Dosage: 40 MG, 1X/DAY
     Route: 048
  7. COLECALCIFEROL [Concomitant]
     Dosage: 25 UG, 1X/DAY

REACTIONS (3)
  - HAEMOCHROMATOSIS [None]
  - HEPATIC STEATOSIS [None]
  - LIVER FUNCTION TEST ABNORMAL [None]
